FAERS Safety Report 15681109 (Version 1)
Quarter: 2018Q4

REPORT INFORMATION
  Report Type: Spontaneous
  Country: US (occurrence: US)
  Receive Date: 20181203
  Receipt Date: 20181203
  Transmission Date: 20190205
  Serious: No
  Sender: FDA-Public Use
  Company Number: US-BAUSCH-BL-2017-027250

PATIENT
  Sex: Female
  Weight: 99.88 kg

DRUGS (2)
  1. CLINDAMYCIN/ BENZOYL PEROXIDE [Suspect]
     Active Substance: BENZOYL PEROXIDE\CLINDAMYCIN
     Indication: ACNE
     Dosage: STRENGTH 1-5 PERCENT
     Route: 061
     Dates: start: 201703, end: 201705
  2. CLINDAMYCIN PHOSPHATE (BY FOUGERA) [Suspect]
     Active Substance: CLINDAMYCIN PHOSPHATE
     Indication: ACNE
     Route: 061
     Dates: start: 201704, end: 201705

REACTIONS (3)
  - Burning sensation [Recovered/Resolved]
  - Drug ineffective [Recovered/Resolved]
  - Acne [Recovered/Resolved]

NARRATIVE: CASE EVENT DATE: 2017
